FAERS Safety Report 9162560 (Version 1)
Quarter: 2013Q1

REPORT INFORMATION
  Report Type: Spontaneous
  Country: FR (occurrence: None)
  Receive Date: 20130222
  Receipt Date: 20130222
  Transmission Date: 20140127
  Serious: Yes (Hospitalization, Other)
  Sender: FDA-Public Use
  Company Number: SYM-2013-00617

PATIENT
  Age: 65 Year
  Sex: Female
  Weight: 88.9 kg

DRUGS (8)
  1. CO-RENITEC [Suspect]
     Indication: HYPERTENSION
     Dosage: 1 DOSAGE FORMS, DAILY, ORAL
     Route: 048
  2. FENOFIBRATE [Concomitant]
  3. FLEXEA 625 MG, TABLETS [Concomitant]
  4. URISPAS [Concomitant]
  5. BELLADONNA ALKALOIDS [Concomitant]
  6. GLONOINUM [Concomitant]
  7. LACHESIS [Concomitant]
  8. CARDIOCALM [Concomitant]

REACTIONS (2)
  - Pancreatitis acute [None]
  - Blood alkaline phosphatase increased [None]
